FAERS Safety Report 9288001 (Version 1)
Quarter: 2013Q2

REPORT INFORMATION
  Report Type: Spontaneous
  Country: US (occurrence: US)
  Receive Date: 20130514
  Receipt Date: 20130514
  Transmission Date: 20140414
  Serious: Yes (Other)
  Sender: FDA-Public Use
  Company Number: US-ROCHE-1222776

PATIENT
  Age: 63 Year
  Sex: Female

DRUGS (3)
  1. PEGASYS [Suspect]
     Indication: CHRONIC HEPATITIS C
     Route: 065
     Dates: start: 20120331, end: 20120921
  2. RIBAPAK [Suspect]
     Indication: CHRONIC HEPATITIS C
     Route: 065
     Dates: start: 20120331, end: 20120921
  3. TELAPREVIR [Suspect]
     Indication: CHRONIC HEPATITIS C
     Route: 065
     Dates: end: 20120630

REACTIONS (2)
  - Visual acuity reduced [Unknown]
  - Corneal graft rejection [Unknown]
